FAERS Safety Report 25860541 (Version 1)
Quarter: 2025Q3

REPORT INFORMATION
  Report Type: Spontaneous
  Country: US (occurrence: None)
  Receive Date: 20250929
  Receipt Date: 20250929
  Transmission Date: 20251020
  Serious: Yes (Hospitalization)
  Sender: FDA-CTU
  Company Number: None

PATIENT
  Age: 88 Year
  Sex: Female
  Weight: 70.9 kg

DRUGS (2)
  1. APIXABAN [Suspect]
     Active Substance: APIXABAN
  2. APIXABAN [Concomitant]
     Active Substance: APIXABAN

REACTIONS (2)
  - Cardiac ventricular thrombosis [None]
  - Treatment failure [None]

NARRATIVE: CASE EVENT DATE: 20250924
